FAERS Safety Report 13228237 (Version 2)
Quarter: 2018Q1

REPORT INFORMATION
  Report Type: Spontaneous
  Country: US (occurrence: US)
  Receive Date: 20170213
  Receipt Date: 20180219
  Transmission Date: 20180508
  Serious: No
  Sender: FDA-Public Use
  Company Number: US-ROCHE-1839528

PATIENT
  Sex: Female
  Weight: 45.2 kg

DRUGS (1)
  1. XOLAIR [Suspect]
     Active Substance: OMALIZUMAB
     Indication: ASTHMA
     Dosage: SOLUTION
     Route: 058

REACTIONS (7)
  - Muscular weakness [Unknown]
  - Wheezing [Unknown]
  - Anxiety [Unknown]
  - Nausea [Recovered/Resolved]
  - Chest discomfort [Unknown]
  - Dizziness [Unknown]
  - Fatigue [Recovered/Resolved]
